FAERS Safety Report 16912831 (Version 1)
Quarter: 2019Q4

REPORT INFORMATION
  Report Type: Spontaneous
  Country: US (occurrence: US)
  Receive Date: 20190821
  Receipt Date: 20190821
  Transmission Date: 20200122
  Serious: No
  Sender: FDA-Public Use
  Company Number: None

PATIENT

DRUGS (1)
  1. AMANTADINE 100MG [Suspect]
     Active Substance: AMANTADINE

REACTIONS (8)
  - Disorientation [None]
  - Confusional state [None]
  - Therapy cessation [None]
  - Mental impairment [None]
  - Psychotic disorder [None]
  - Off label use [None]
  - Paranoia [None]
  - Agitation [None]

NARRATIVE: CASE EVENT DATE: 20181225
